FAERS Safety Report 8464067 (Version 2)
Quarter: 2016Q1

REPORT INFORMATION
  Report Type: Spontaneous
  Country: JP (occurrence: JP)
  Receive Date: 20120316
  Receipt Date: 20160225
  Transmission Date: 20160526
  Serious: Yes (Hospitalization)
  Sender: FDA-Public Use
  Company Number: JP-AMGEN-JPNSP2012009203

PATIENT
  Age: 2 Year
  Sex: Male
  Weight: 8 kg

DRUGS (11)
  1. OXAROL [Concomitant]
     Active Substance: MAXACALCITOL
     Indication: BLOOD PARATHYROID HORMONE INCREASED
     Dosage: 2.5 MUG, 3 TIMES/WK -15 TIME EXECUTION
     Route: 042
     Dates: start: 20100819, end: 20100922
  2. DIOVAN [Concomitant]
     Active Substance: VALSARTAN
     Indication: HYPERTENSION
     Dosage: 8 MG, QD
     Route: 048
  3. REGPARA [Suspect]
     Active Substance: CINACALCET HYDROCHLORIDE
     Indication: HYPERPARATHYROIDISM SECONDARY
     Dosage: 2 MG, QD
     Route: 048
     Dates: start: 20111106, end: 20120128
  4. TENORMIN [Concomitant]
     Active Substance: ATENOLOL
     Indication: HYPERTENSION
     Dosage: 5 MG, QD
     Route: 048
  5. EPOGIN [Concomitant]
     Active Substance: ERYTHROPOIETIN
     Indication: NEPHROGENIC ANAEMIA
     Dosage: 3000 IU, Q2WK
     Route: 058
  6. ALFAROL [Concomitant]
     Active Substance: ALFACALCIDOL
     Indication: HYPERPARATHYROIDISM SECONDARY
     Dosage: 0.25 MUG, QD
     Route: 048
     Dates: start: 20120124, end: 20120203
  7. CALTAN [Concomitant]
     Active Substance: CALCIUM CARBONATE
     Indication: HYPOCALCAEMIA
     Dosage: 0.33 G, TID
     Route: 048
     Dates: start: 20080126
  8. GENOTROPIN [Concomitant]
     Active Substance: SOMATROPIN
     Indication: BODY HEIGHT BELOW NORMAL
     Dosage: 0.2 MG, UNK
     Route: 058
  9. ROCALTROL [Concomitant]
     Active Substance: CALCITRIOL
     Indication: BLOOD PARATHYROID HORMONE INCREASED
     Dosage: 0.1 MUG/KG, 3 TIMES/WK
     Route: 042
     Dates: start: 20100710
  10. FERROMIA [Concomitant]
     Active Substance: FERROUS CITRATE
     Indication: IRON DEFICIENCY ANAEMIA
     Dosage: 30 MG, BID
     Route: 048
  11. RENAGEL [Concomitant]
     Active Substance: SEVELAMER HYDROCHLORIDE
     Indication: HYPERPHOSPHATAEMIA
     Dosage: 250 MG, TID
     Route: 048
     Dates: start: 20110908, end: 20120129

REACTIONS (2)
  - Hyperparathyroidism secondary [Recovered/Resolved]
  - Hypocalcaemia [Recovered/Resolved]

NARRATIVE: CASE EVENT DATE: 20120112
